FAERS Safety Report 15389481 (Version 2)
Quarter: 2018Q3

REPORT INFORMATION
  Report Type: Spontaneous
  Country: US (occurrence: US)
  Receive Date: 20180917
  Receipt Date: 20180924
  Transmission Date: 20181010
  Serious: Yes (Other)
  Sender: FDA-Public Use
  Company Number: US-HORIZON-KRY-0281-2018

PATIENT
  Sex: Male

DRUGS (1)
  1. KRYSTEXXA [Suspect]
     Active Substance: PEGLOTICASE
     Indication: GOUT
     Dates: end: 20180911

REACTIONS (5)
  - Vomiting [Unknown]
  - Chest discomfort [Unknown]
  - Cyanosis [Unknown]
  - Hypotension [Unknown]
  - Cold sweat [Unknown]

NARRATIVE: CASE EVENT DATE: 20180911
